FAERS Safety Report 6201324-8 (Version None)
Quarter: 2009Q2

REPORT INFORMATION
  Report Type: 
  Country: None (occurrence: None)
  Receive Date: 20090526
  Receipt Date: 20090515
  Transmission Date: 20091009
  Serious: Yes (Other)
  Sender: FDA-Public Use
  Company Number: PHHY2009JP16394

PATIENT
  Age: 59 Year
  Sex: Female

DRUGS (2)
  1. DIOVAN HCT [Suspect]
     Dosage: 1 DF
     Route: 048
     Dates: start: 20080316, end: 20090424
  2. DIOVAN [Concomitant]
     Dosage: 80 MG
     Route: 048
     Dates: start: 20081214, end: 20090315

REACTIONS (2)
  - VENTRICULAR EXTRASYSTOLES [None]
  - VENTRICULAR TACHYCARDIA [None]
